FAERS Safety Report 9693113 (Version 4)
Quarter: 2014Q1

REPORT INFORMATION
  Report Type: Report from Study
  Country: US (occurrence: US)
  Receive Date: 20131118
  Receipt Date: 20140304
  Transmission Date: 20141002
  Serious: Yes (Other)
  Sender: FDA-Public Use
  Company Number: US-SA-2013SA117669

PATIENT
  Age: 38 Year
  Sex: Female
  Weight: 63 kg

DRUGS (12)
  1. AUBAGIO [Suspect]
     Indication: MULTIPLE SCLEROSIS
     Route: 048
     Dates: start: 20121214, end: 20131101
  2. SOLUMEDROL [Concomitant]
     Route: 042
  3. WELLBUTRIN [Concomitant]
     Indication: FATIGUE
     Route: 065
  4. WELLBUTRIN [Concomitant]
     Indication: DEPRESSION
     Route: 065
  5. ADDERALL XR [Concomitant]
     Indication: FATIGUE
     Route: 065
  6. TOPIRAMATE [Concomitant]
     Indication: FACIAL PAIN
     Dosage: 100 MG / 200 MG = 300 MG DAILY
     Route: 065
  7. STRATTERA [Concomitant]
     Indication: FATIGUE
     Route: 065
  8. LOESTRIN [Concomitant]
  9. TAMSULOSIN [Concomitant]
     Indication: URINARY HESITATION
     Route: 065
  10. ALL OTHER THERAPEUTIC PRODUCTS [Concomitant]
     Indication: MULTIPLE SCLEROSIS
     Route: 065
  11. TEMAZEPAM [Concomitant]
     Indication: SLEEP DISORDER
     Dosage: 15-22.5 MG DAILY
     Route: 065
  12. ABILIFY [Concomitant]
     Indication: DEPRESSION
     Route: 065

REACTIONS (8)
  - Renal impairment [Recovering/Resolving]
  - Tubulointerstitial nephritis [Recovering/Resolving]
  - Blood creatinine increased [Recovering/Resolving]
  - Pollakiuria [Recovering/Resolving]
  - Pruritus [Unknown]
  - Nausea [Unknown]
  - Decreased appetite [Unknown]
  - Renal failure acute [Recovered/Resolved]
